FAERS Safety Report 5359808-0 (Version None)
Quarter: 2007Q2

REPORT INFORMATION
  Report Type: 
  Country: None (occurrence: None)
  Receive Date: 20070530
  Receipt Date: 20070316
  Transmission Date: 20071010
  Serious: No
  Sender: FDA-Public Use
  Company Number: 2007PV031832

PATIENT
  Age: 69 Year
  Sex: Female
  Weight: 99.7913 kg

DRUGS (3)
  1. BYETTA [Suspect]
     Indication: WEIGHT DECREASED
     Dosage: 5 MCG;BID;SC
     Route: 058
     Dates: start: 20070301, end: 20070301
  2. GLUCOTROL XL [Concomitant]
  3. ACTOS [Concomitant]

REACTIONS (2)
  - BLOOD GLUCOSE DECREASED [None]
  - FEELING ABNORMAL [None]
